FAERS Safety Report 7199128-5 (Version None)
Quarter: 2010Q4

REPORT INFORMATION
  Report Type: 
  Country: None (occurrence: None)
  Receive Date: 20101223
  Receipt Date: 20101223
  Transmission Date: 20110411
  Serious: No
  Sender: FDA-Public Use
  Company Number: None

PATIENT
  Age: 70 Year
  Sex: Female
  Weight: 104.3273 kg

DRUGS (2)
  1. DARVOCET [Suspect]
     Indication: ARTHRITIS
     Dosage: 1 EVERY 6 HRS. WHEN NEEDED
     Dates: start: 20080401, end: 20100101
  2. DARVOCET [Suspect]
     Indication: BREAST CANCER
     Dosage: 1 EVERY 6 HRS. WHEN NEEDED
     Dates: start: 20080401, end: 20100101

REACTIONS (2)
  - DIZZINESS [None]
  - PRESYNCOPE [None]
